FAERS Safety Report 10661670 (Version 1)
Quarter: 2014Q4

REPORT INFORMATION
  Report Type: Spontaneous
  Country: US (occurrence: US)
  Receive Date: 20141218
  Receipt Date: 20141218
  Transmission Date: 20150529
  Serious: Yes (Other)
  Sender: FDA-Public Use
  Company Number: US-MALLINCKRODT-T201404415

PATIENT
  Age: 49 Year
  Sex: Female
  Weight: 91 kg

DRUGS (8)
  1. GLIPIZIDE. [Concomitant]
     Active Substance: GLIPIZIDE
     Dosage: UNK
  2. METHADONE [Suspect]
     Active Substance: METHADONE HYDROCHLORIDE
     Indication: PAIN
     Dosage: 5 MG, BID
     Route: 048
     Dates: start: 201411, end: 201411
  3. NORVASC [Concomitant]
     Active Substance: AMLODIPINE BESYLATE
     Dosage: UNK
  4. LIPITOR [Concomitant]
     Active Substance: ATORVASTATIN CALCIUM
     Dosage: UNK
  5. INSULIN [Concomitant]
     Active Substance: INSULIN NOS
     Dosage: UNK
  6. CLONIDINE. [Concomitant]
     Active Substance: CLONIDINE
     Dosage: UNK
  7. COPAXONE [Suspect]
     Active Substance: GLATIRAMER ACETATE
     Indication: MULTIPLE SCLEROSIS
     Dosage: 40 MG, UNK
     Route: 050
     Dates: start: 20140711, end: 201412
  8. LYRICA [Concomitant]
     Active Substance: PREGABALIN
     Dosage: UNK

REACTIONS (5)
  - Generalised oedema [Recovered/Resolved]
  - Blister [Not Recovered/Not Resolved]
  - Muscle spasms [Recovered/Resolved]
  - Fluid retention [Recovered/Resolved]
  - Loss of consciousness [Recovered/Resolved]

NARRATIVE: CASE EVENT DATE: 201411
